FAERS Safety Report 13545368 (Version 1)
Quarter: 2017Q2

REPORT INFORMATION
  Report Type: Spontaneous
  Country: US (occurrence: US)
  Receive Date: 20170513
  Receipt Date: 20170513
  Transmission Date: 20170830
  Serious: No
  Sender: FDA-Public Use
  Company Number: None

PATIENT
  Age: 26 Year
  Sex: Male
  Weight: 90 kg

DRUGS (5)
  1. BUPROPION HYDROCHLORIDE SR [Suspect]
     Active Substance: BUPROPION HYDROCHLORIDE
     Indication: DEPRESSION
     Dosage: ?          QUANTITY:30 TABLET(S);?
     Route: 048
     Dates: start: 20170419, end: 20170512
  2. GENERIC WELLBUTRIN SR [Concomitant]
  3. GENERIC LAMICTAL [Concomitant]
     Active Substance: LAMOTRIGINE
  4. BUSPAR [Concomitant]
     Active Substance: BUSPIRONE HYDROCHLORIDE
  5. BUPROPION HYDROCHLORIDE XL [Suspect]
     Active Substance: BUPROPION HYDROCHLORIDE
     Indication: DEPRESSION
     Dosage: ?          QUANTITY:30 TABLET(S);?
     Route: 048
     Dates: start: 20170207, end: 20170419

REACTIONS (6)
  - Mental disorder [None]
  - Feeling abnormal [None]
  - Product substitution issue [None]
  - Anxiety [None]
  - Product odour abnormal [None]
  - Headache [None]

NARRATIVE: CASE EVENT DATE: 20170207
